FAERS Safety Report 15337643 (Version 1)
Quarter: 2018Q3

REPORT INFORMATION
  Report Type: Spontaneous
  Country: BR (occurrence: BR)
  Receive Date: 20180831
  Receipt Date: 20180831
  Transmission Date: 20181010
  Serious: Yes (Hospitalization)
  Sender: FDA-Public Use
  Company Number: BR-BAXTER-2018BAX022487

PATIENT
  Age: 48 Year
  Sex: Male
  Weight: 80 kg

DRUGS (24)
  1. PREDNISONE. [Suspect]
     Active Substance: PREDNISONE
     Indication: NON-HODGKIN^S LYMPHOMA
     Dosage: AS A PART OF R?CHOP THERAPY
     Route: 065
  2. PLAVIX [Concomitant]
     Active Substance: CLOPIDOGREL BISULFATE
     Indication: PRODUCT USED FOR UNKNOWN INDICATION
     Route: 065
  3. FAULDOXO [Suspect]
     Active Substance: DOXORUBICIN HYDROCHLORIDE
     Indication: DIFFUSE LARGE B-CELL LYMPHOMA
     Dosage: AFTER THE FIFTH CYCLE OF R?CHOP PROTOCOL, DILUTED IN 50 ML OF SODIUM CHLORIDE AND INFUSED FOR 15 MIN
     Route: 042
     Dates: start: 20180518
  4. ACETYLSALICYLIC ACID [Concomitant]
     Active Substance: ASPIRIN
     Indication: PRODUCT USED FOR UNKNOWN INDICATION
     Route: 065
  5. PROCORALAN [Concomitant]
     Active Substance: IVABRADINE
     Indication: PRODUCT USED FOR UNKNOWN INDICATION
     Route: 065
  6. FAULDOXO [Suspect]
     Active Substance: DOXORUBICIN HYDROCHLORIDE
     Dosage: CYCLE 8, AS A PART OF R?CHOP THERAPY
     Route: 042
     Dates: start: 20180720, end: 20180720
  7. ALDACTONE [Concomitant]
     Active Substance: SPIRONOLACTONE
     Indication: PRODUCT USED FOR UNKNOWN INDICATION
     Route: 065
  8. GENUXAL [Suspect]
     Active Substance: CYCLOPHOSPHAMIDE
     Dosage: CYCLE 8, AS A PART OF R?CHOP THERAPY
     Route: 042
     Dates: start: 20180720, end: 20180720
  9. MABTHERA [Suspect]
     Active Substance: RITUXIMAB
     Dosage: CYCLE 7, AS A PART OF R?CHOP THERAPY
     Route: 058
     Dates: start: 20180629, end: 20180629
  10. CRESTOR [Concomitant]
     Active Substance: ROSUVASTATIN CALCIUM
     Indication: PRODUCT USED FOR UNKNOWN INDICATION
     Route: 065
  11. LIPLESS [Concomitant]
     Active Substance: CIPROFIBRATE
     Indication: PRODUCT USED FOR UNKNOWN INDICATION
     Route: 065
  12. TRAYENTA [Concomitant]
     Active Substance: LINAGLIPTIN
     Indication: PRODUCT USED FOR UNKNOWN INDICATION
     Dosage: DOSE: 2.5/1000 (UNITS NOT REPORTED)
     Route: 065
  13. SODIUM CHLORIDE. [Suspect]
     Active Substance: SODIUM CHLORIDE
     Indication: MEDICATION DILUTION
     Route: 042
     Dates: start: 20180122, end: 20180720
  14. ENALAPRIL [Concomitant]
     Active Substance: ENALAPRIL
     Indication: PRODUCT USED FOR UNKNOWN INDICATION
     Route: 065
  15. JARDIANCE [Concomitant]
     Active Substance: EMPAGLIFLOZIN
     Indication: PRODUCT USED FOR UNKNOWN INDICATION
     Route: 065
  16. GENUXAL [Suspect]
     Active Substance: CYCLOPHOSPHAMIDE
     Indication: NON-HODGKIN^S LYMPHOMA
     Dosage: AS A PART OF R?CHOP THERAPY, DILUTED IN 250 ML OF SODIUM CHLORIDE AND INFUSED FOR 45 MINUTES
     Route: 042
     Dates: start: 20180122
  17. FAULDOXO [Suspect]
     Active Substance: DOXORUBICIN HYDROCHLORIDE
     Dosage: CYCLE 7, AS A PART OF R?CHOP THERAPY
     Route: 042
     Dates: start: 20180629, end: 20180629
  18. MABTHERA [Suspect]
     Active Substance: RITUXIMAB
     Indication: DIFFUSE LARGE B-CELL LYMPHOMA
     Dosage: AS A PART OF R?CHOP THERAPY, INFUSED FOR 5 MINUTES
     Route: 058
     Dates: start: 20180216
  19. ALLOPURINOL. [Concomitant]
     Active Substance: ALLOPURINOL
     Indication: PRODUCT USED FOR UNKNOWN INDICATION
     Route: 065
  20. MABTHERA [Suspect]
     Active Substance: RITUXIMAB
     Dosage: CYCLE 8, AS A PART OF R?CHOP THERAPY
     Route: 058
     Dates: start: 20180720, end: 20180720
  21. PANTOPRAZOLE [Concomitant]
     Active Substance: PANTOPRAZOLE
     Indication: PRODUCT USED FOR UNKNOWN INDICATION
     Route: 065
  22. CONCOR [Concomitant]
     Active Substance: BISOPROLOL FUMARATE
     Indication: PRODUCT USED FOR UNKNOWN INDICATION
     Route: 065
  23. ACYCLOVIR. [Concomitant]
     Active Substance: ACYCLOVIR
     Indication: PRODUCT USED FOR UNKNOWN INDICATION
     Route: 065
  24. GENUXAL [Suspect]
     Active Substance: CYCLOPHOSPHAMIDE
     Dosage: CYCLE 7, AS A PART OF R?CHOP THERAPY
     Route: 042
     Dates: start: 20180629, end: 20180629

REACTIONS (4)
  - Hypotension [Recovered/Resolved]
  - Lactic acidosis [Recovered/Resolved]
  - Dehydration [Recovered/Resolved]
  - Neutropenia [Recovered/Resolved]

NARRATIVE: CASE EVENT DATE: 20180712
